FAERS Safety Report 10272989 (Version 1)
Quarter: 2014Q2

REPORT INFORMATION
  Report Type: Spontaneous
  Country: US (occurrence: None)
  Receive Date: 20140627
  Receipt Date: 20140627
  Transmission Date: 20141212
  Serious: No
  Sender: FDA-Public Use
  Company Number: None

PATIENT
  Age: 49 Year
  Sex: Male
  Weight: 80.8 kg

DRUGS (1)
  1. VANCOMYCIN [Suspect]
     Route: 042
     Dates: start: 20140125, end: 20140130

REACTIONS (2)
  - Chest pain [None]
  - Cold sweat [None]
